FAERS Safety Report 18726724 (Version 2)
Quarter: 2021Q2

REPORT INFORMATION
  Report Type: Spontaneous
  Country: US (occurrence: US)
  Receive Date: 20210111
  Receipt Date: 20210422
  Transmission Date: 20210717
  Serious: No
  Sender: FDA-Public Use
  Company Number: US-PFIZER INC-2021008522

PATIENT

DRUGS (1)
  1. HEPARIN SODIUM. [Suspect]
     Active Substance: HEPARIN SODIUM
     Indication: SURGERY
     Dosage: UNK (30ML VIAL, 1000UNITS/ML BY HOSPIRA)

REACTIONS (1)
  - Blood test abnormal [Unknown]
